FAERS Safety Report 13112238 (Version 1)
Quarter: 2017Q1

REPORT INFORMATION
  Report Type: Spontaneous
  Country: US (occurrence: US)
  Receive Date: 20170113
  Receipt Date: 20170113
  Transmission Date: 20170428
  Serious: No
  Sender: FDA-Public Use
  Company Number: US-BIOGEN-2017BI00341113

PATIENT
  Sex: Female

DRUGS (3)
  1. TYSABRI [Suspect]
     Active Substance: NATALIZUMAB
     Indication: MULTIPLE SCLEROSIS
     Route: 042
     Dates: start: 20050113
  2. TYSABRI [Suspect]
     Active Substance: NATALIZUMAB
     Dates: start: 20061103
  3. TYSABRI [Suspect]
     Active Substance: NATALIZUMAB
     Dates: end: 20070514

REACTIONS (1)
  - Dementia [Not Recovered/Not Resolved]
